FAERS Safety Report 12402614 (Version 2)
Quarter: 2016Q2

REPORT INFORMATION
  Report Type: Spontaneous
  Country: US (occurrence: US)
  Receive Date: 20160525
  Receipt Date: 20160527
  Transmission Date: 20160815
  Serious: No
  Sender: FDA-Public Use
  Company Number: US-SA-2016SA062669

PATIENT
  Age: 73 Year
  Sex: Female
  Weight: 67.1 kg

DRUGS (8)
  1. TRADJENTA [Concomitant]
     Active Substance: LINAGLIPTIN
  2. GLIPIZIDE. [Concomitant]
     Active Substance: GLIPIZIDE
  3. LANTUS SOLOSTAR [Suspect]
     Active Substance: INSULIN GLARGINE
     Indication: TYPE 2 DIABETES MELLITUS
     Dosage: DOSE:15 UNIT(S)
     Route: 065
  4. LANTUS SOLOSTAR [Suspect]
     Active Substance: INSULIN GLARGINE
     Indication: TYPE 2 DIABETES MELLITUS
     Dosage: DOSE:17 UNIT(S)
     Route: 065
     Dates: start: 2016
  5. METFORMIN [Concomitant]
     Active Substance: METFORMIN HYDROCHLORIDE
  6. SOLOSTAR [Concomitant]
     Active Substance: DEVICE
  7. DIOVAN HCT [Concomitant]
     Active Substance: HYDROCHLOROTHIAZIDE\VALSARTAN
     Indication: RENAL DISORDER
  8. GLIMEPIRIDE. [Concomitant]
     Active Substance: GLIMEPIRIDE

REACTIONS (14)
  - Sciatica [Unknown]
  - Abnormal behaviour [Unknown]
  - Renal disorder [Unknown]
  - Incontinence [Unknown]
  - Hypertension [Unknown]
  - Peripheral swelling [Unknown]
  - Back disorder [Unknown]
  - Blood glucose increased [Unknown]
  - Fluid overload [Unknown]
  - Nervousness [Unknown]
  - Feeling jittery [Unknown]
  - Anger [Unknown]
  - Psychotic behaviour [Unknown]
  - Weight increased [Unknown]
